FAERS Safety Report 7554672-3 (Version None)
Quarter: 2011Q2

REPORT INFORMATION
  Report Type: 
  Country: None (occurrence: None)
  Receive Date: 20110610
  Receipt Date: 20110601
  Transmission Date: 20111010
  Serious: Yes (Hospitalization)
  Sender: FDA-Public Use
  Company Number: IBUP20110002

PATIENT
  Age: 45 Year
  Sex: Female

DRUGS (1)
  1. IBUPROFEN [Suspect]
     Indication: DENTAL CARIES
     Dosage: 9.6-14.4 G, DAILY, ORAL
     Route: 048

REACTIONS (9)
  - DECREASED APPETITE [None]
  - RENAL TUBULAR ACIDOSIS [None]
  - HYPOKALAEMIA [None]
  - LETHARGY [None]
  - MICROCYTIC ANAEMIA [None]
  - RENAL FAILURE ACUTE [None]
  - OESOPHAGEAL STENOSIS [None]
  - GASTRIC ULCER [None]
  - OVERDOSE [None]
